FAERS Safety Report 5902009-5 (Version None)
Quarter: 2008Q3

REPORT INFORMATION
  Report Type: 
  Country: None (occurrence: None)
  Receive Date: 20080909
  Receipt Date: 20080519
  Transmission Date: 20090109
  Serious: Yes (Other)
  Sender: FDA-Public Use
  Company Number: US-WYE-H04175408

PATIENT
  Age: 84 Year
  Sex: Female
  Weight: 63.56 kg

DRUGS (2)
  1. ADVIL [Suspect]
     Indication: BACK PAIN
     Dosage: 1 LIQUI-GEL X 1, ORAL
     Route: 048
     Dates: start: 20080501, end: 20080501
  2. PREDNISONE [Concomitant]

REACTIONS (2)
  - CONDITION AGGRAVATED [None]
  - GASTROOESOPHAGEAL REFLUX DISEASE [None]
